FAERS Safety Report 20893590 (Version 1)
Quarter: 2022Q2

REPORT INFORMATION
  Report Type: Spontaneous
  Country: GB (occurrence: GB)
  Receive Date: 20220531
  Receipt Date: 20220531
  Transmission Date: 20220721
  Serious: Yes (Life-Threatening, Hospitalization, Disabling, Congenital Anomaly, Other)
  Sender: FDA-Public Use
  Company Number: None

PATIENT
  Age: 31 Year
  Sex: Male
  Weight: 100 kg

DRUGS (1)
  1. IBUPROFEN [Suspect]
     Active Substance: IBUPROFEN
     Indication: Migraine
     Dosage: 600 MILLIGRAM, TID (3 TIMES DAILY)
     Route: 065

REACTIONS (3)
  - Neoplasm malignant [Recovered/Resolved]
  - Autoimmune disorder [Recovered/Resolved]
  - Mental disorder [Not Recovered/Not Resolved]
